FAERS Safety Report 7028571-X (Version None)
Quarter: 2010Q3

REPORT INFORMATION
  Report Type: 
  Country: None (occurrence: None)
  Receive Date: 20100824
  Receipt Date: 20100812
  Transmission Date: 20110219
  Serious: Yes (Hospitalization, Other)
  Sender: FDA-Public Use
  Company Number: AEUSA201000293

PATIENT
  Age: 54 Year
  Sex: Female

DRUGS (2)
  1. GAMASTAN [Suspect]
     Indication: INFECTION PROPHYLAXIS
     Dosage: 2 ML; QW; IM
     Route: 030
     Dates: start: 20010101, end: 20100101
  2. CORTICOSTEROIDS [Concomitant]

REACTIONS (4)
  - GUILLAIN-BARRE SYNDROME [None]
  - HEADACHE [None]
  - MENINGITIS VIRAL [None]
  - UPPER RESPIRATORY TRACT INFECTION [None]
